FAERS Safety Report 7844805-3 (Version None)
Quarter: 2011Q4

REPORT INFORMATION
  Report Type: 
  Country: None (occurrence: None)
  Receive Date: 20111025
  Receipt Date: 20111018
  Transmission Date: 20120403
  Serious: Yes (Death)
  Sender: FDA-Public Use
  Company Number: US-GLAXOSMITHKLINE-A0939114A

PATIENT
  Age: 85 Year
  Sex: Female

DRUGS (3)
  1. MORPHINE [Concomitant]
  2. HYDROCODONE BITARTRATE [Concomitant]
  3. ARIXTRA [Suspect]
     Indication: ANTICOAGULANT THERAPY
     Dosage: 5MG PER DAY
     Route: 058
     Dates: start: 20110515, end: 20110724

REACTIONS (1)
  - METASTASIS [None]
